FAERS Safety Report 10561130 (Version 1)
Quarter: 2014Q4

REPORT INFORMATION
  Report Type: Spontaneous
  Country: US (occurrence: US)
  Receive Date: 20141103
  Receipt Date: 20141103
  Transmission Date: 20150529
  Serious: No
  Sender: FDA-Public Use
  Company Number: US-GLAXOSMITHKLINE-US2014GSK015840

PATIENT
  Age: 92 Year
  Sex: Female

DRUGS (7)
  1. VITAMINS [Concomitant]
     Active Substance: VITAMINS
  2. SINGULAIR [Concomitant]
     Active Substance: MONTELUKAST SODIUM
  3. ADVAIR DISKUS [Suspect]
     Active Substance: FLUTICASONE PROPIONATE\SALMETEROL XINAFOATE
     Indication: ASTHMA
     Dosage: 1 PUFF(S), BID
     Route: 055
     Dates: start: 201406, end: 2014
  4. ADVAIR DISKUS [Suspect]
     Active Substance: FLUTICASONE PROPIONATE\SALMETEROL XINAFOATE
     Dosage: 1 PUFF(S), QD
     Dates: start: 2014, end: 20140928
  5. ALBUTEROL-IPRATROPIUM [Concomitant]
  6. THYROID MEDICATION [Concomitant]
     Active Substance: UNSPECIFIED INGREDIENT
  7. BUDESONIDE NEBULIZER [Concomitant]
     Active Substance: BUDESONIDE

REACTIONS (1)
  - Muscle spasms [Recovering/Resolving]

NARRATIVE: CASE EVENT DATE: 201406
